FAERS Safety Report 25653033 (Version 2)
Quarter: 2025Q3

REPORT INFORMATION
  Report Type: Spontaneous
  Country: EU (occurrence: EU)
  Receive Date: 20250807
  Receipt Date: 20250901
  Transmission Date: 20251020
  Serious: Yes (Other)
  Sender: ALEXION PHARMACEUTICALS
  Company Number: EU-AstraZeneca-CH-00924923A

PATIENT
  Age: 28 Year
  Sex: Female

DRUGS (7)
  1. SAPHNELO [Suspect]
     Active Substance: ANIFROLUMAB-FNIA
     Indication: Systemic lupus erythematosus
     Route: 065
  2. ASPIRIN [Concomitant]
     Active Substance: ASPIRIN
     Route: 065
  3. CHOLECALCIFEROL [Concomitant]
     Active Substance: CHOLECALCIFEROL
     Route: 065
  4. DICLOFENAC [Concomitant]
     Active Substance: DICLOFENAC
     Route: 065
  5. MYCOPHENOLIC ACID [Concomitant]
     Active Substance: MYCOPHENOLIC ACID
     Route: 065
  6. PREDNISOLONE [Concomitant]
     Active Substance: PREDNISOLONE
     Route: 065
  7. HYDROXYCHLOROQUINE [Concomitant]
     Active Substance: HYDROXYCHLOROQUINE
     Route: 065

REACTIONS (15)
  - Pneumonitis [Unknown]
  - Carditis [Unknown]
  - Pericarditis [Unknown]
  - Fatigue [Unknown]
  - Rash [Unknown]
  - Pain [Unknown]
  - Photosensitivity reaction [Unknown]
  - Lupus vasculitis [Unknown]
  - Listless [Unknown]
  - Anaemia [Unknown]
  - Alopecia [Unknown]
  - Arthritis [Unknown]
  - Joint swelling [Unknown]
  - Myalgia [Unknown]
  - Lymph node pain [Unknown]
